FAERS Safety Report 7854373-8 (Version None)
Quarter: 2011Q4

REPORT INFORMATION
  Report Type: 
  Country: None (occurrence: None)
  Receive Date: 20111026
  Receipt Date: 20111021
  Transmission Date: 20120403
  Serious: Yes (Other)
  Sender: FDA-Public Use
  Company Number: BR-PFIZER INC-2011256645

PATIENT
  Age: 58 Year
  Sex: Male
  Weight: 120 kg

DRUGS (5)
  1. ALLOPURINOL [Concomitant]
     Dosage: 300 MG, 1X/DAY
  2. METFORMIN [Concomitant]
     Dosage: 850 MG, 2X/DAY
  3. METFORMIN HYDROCHLORIDE/VILDAGLIPTIN [Concomitant]
     Dosage: 850 MG /50 MG, 2X/DAY
  4. LIPITOR [Suspect]
     Dosage: 40 MG, 1X/DAY
  5. AMLODIPINE/VALSARTAN [Concomitant]
     Indication: HYPERTENSION
     Dosage: 320 MG /5 MG, 1X/DAY

REACTIONS (6)
  - LOW DENSITY LIPOPROTEIN INCREASED [None]
  - BLOOD TRIGLYCERIDES INCREASED [None]
  - BLOOD URIC ACID INCREASED [None]
  - BLOOD GLUCOSE INCREASED [None]
  - DIABETES MELLITUS INADEQUATE CONTROL [None]
  - HIGH DENSITY LIPOPROTEIN DECREASED [None]
